FAERS Safety Report 20578267 (Version 1)
Quarter: 2022Q1

REPORT INFORMATION
  Report Type: Spontaneous
  Country: US (occurrence: None)
  Receive Date: 20220310
  Receipt Date: 20220310
  Transmission Date: 20220423
  Serious: Yes (Hospitalization)
  Sender: FDA-Public Use
  Company Number: None

PATIENT
  Age: 73 Year
  Sex: Male
  Weight: 74 kg

DRUGS (1)
  1. PREDNISONE [Suspect]
     Active Substance: PREDNISONE
     Indication: Sinusitis
     Dosage: FREQUENCY : AS DIRECTED;?
     Route: 048
     Dates: start: 20211217, end: 20211218

REACTIONS (8)
  - Hallucination, visual [None]
  - Confusional state [None]
  - Dysarthria [None]
  - Fatigue [None]
  - Acute respiratory failure [None]
  - Agitation [None]
  - Lymphadenopathy [None]
  - Mantle cell lymphoma recurrent [None]

NARRATIVE: CASE EVENT DATE: 20211220
